FAERS Safety Report 5290638-4 (Version None)
Quarter: 2007Q2

REPORT INFORMATION
  Report Type: 
  Country: None (occurrence: None)
  Receive Date: 20070409
  Receipt Date: 20070330
  Transmission Date: 20071010
  Serious: Yes (Life-Threatening, Other)
  Sender: FDA-Public Use
  Company Number: CA-GLAXOSMITHKLINE-A0645300A

PATIENT
  Age: 4 Year
  Sex: Male

DRUGS (5)
  1. VENTOLIN [Suspect]
     Indication: ASTHMA
     Route: 055
     Dates: start: 20070328, end: 20070328
  2. FLOVENT [Suspect]
     Indication: ASTHMA
     Dosage: 1PUFF TWICE PER DAY
     Route: 055
     Dates: start: 20070328
  3. BENADRYL [Concomitant]
     Dosage: 20MG SEE DOSAGE TEXT
     Route: 048
     Dates: start: 20070327
  4. PREDNISOLONE [Concomitant]
  5. EPINEPHRINE [Concomitant]

REACTIONS (4)
  - ANGIOEDEMA [None]
  - DRUG INEFFECTIVE [None]
  - LIP SWELLING [None]
  - WHEEZING [None]
